FAERS Safety Report 6249147-8 (Version None)
Quarter: 2009Q2

REPORT INFORMATION
  Report Type: 
  Country: None (occurrence: None)
  Receive Date: 20090624
  Receipt Date: 20090624
  Transmission Date: 20091009
  Serious: Yes (Hospitalization)
  Sender: FDA-Public Use
  Company Number: None

PATIENT
  Age: 58 Year
  Sex: Female
  Weight: 122.4712 kg

DRUGS (1)
  1. LYRICA [Suspect]
     Dosage: 75 MG TID PO
     Route: 048
     Dates: start: 20090225, end: 20090306

REACTIONS (4)
  - BLOOD PRESSURE INADEQUATELY CONTROLLED [None]
  - DIABETES MELLITUS INADEQUATE CONTROL [None]
  - HALLUCINATION [None]
  - UNRESPONSIVE TO STIMULI [None]
